FAERS Safety Report 16830379 (Version 1)
Quarter: 2019Q3

REPORT INFORMATION
  Report Type: Spontaneous
  Country: US (occurrence: US)
  Receive Date: 20190920
  Receipt Date: 20190920
  Transmission Date: 20191005
  Serious: Yes (Hospitalization, Other)
  Sender: FDA-Public Use
  Company Number: US-MICRO LABS LIMITED-ML2019-02489

PATIENT
  Age: 16 Year
  Sex: Female

DRUGS (1)
  1. VERAPAMIL HYDROCHLORIDE. [Suspect]
     Active Substance: VERAPAMIL HYDROCHLORIDE
     Dosage: INGESTING 3.6 G OF EXTENDED RELEASE VERAPAMIL IN A SUICIDE ATTEMPT.

REACTIONS (3)
  - Hypotension [Recovered/Resolved]
  - Overdose [Unknown]
  - Hypoglycaemia [Recovered/Resolved]
